FAERS Safety Report 6264499-0 (Version None)
Quarter: 2009Q3

REPORT INFORMATION
  Report Type: 
  Country: None (occurrence: None)
  Receive Date: 20090708
  Receipt Date: 20090629
  Transmission Date: 20100115
  Serious: Yes (Hospitalization)
  Sender: FDA-Public Use
  Company Number: CQT2-2009-00020

PATIENT
  Age: 66 Year
  Sex: Male
  Weight: 90 kg

DRUGS (6)
  1. 422 (ANAGRELIDE) [Suspect]
     Indication: ESSENTIAL THROMBOCYTHAEMIA
     Dosage: 0.5 MG, 1X/DAY:QD, ORAL, 1 MG, 1X/DAYLQD, ORAL, 1.5 MG TOTAL DAILY DOSE (DIVIDED INTO TWO DOSES), OR
     Route: 048
     Dates: start: 20060714
  2. 422 (ANAGRELIDE) [Suspect]
     Indication: ESSENTIAL THROMBOCYTHAEMIA
     Dosage: 0.5 MG, 1X/DAY:QD, ORAL, 1 MG, 1X/DAYLQD, ORAL, 1.5 MG TOTAL DAILY DOSE (DIVIDED INTO TWO DOSES), OR
     Route: 048
     Dates: start: 20060717
  3. 422 (ANAGRELIDE) [Suspect]
     Indication: ESSENTIAL THROMBOCYTHAEMIA
     Dosage: 0.5 MG, 1X/DAY:QD, ORAL, 1 MG, 1X/DAYLQD, ORAL, 1.5 MG TOTAL DAILY DOSE (DIVIDED INTO TWO DOSES), OR
     Route: 048
     Dates: start: 20061004
  4. HYDROXYUREA [Suspect]
     Indication: ESSENTIAL THROMBOCYTHAEMIA
     Dosage: 1500 MG, 1X/DAY:QD, ORAL; 1000 MG, 1X/DAY:QD, ORAL (DIVIDED  INTO TWO DOSES), ORAL; 500 MG, 1X/DAY:Q
     Route: 048
     Dates: start: 20050528
  5. HYDROXYUREA [Suspect]
     Indication: ESSENTIAL THROMBOCYTHAEMIA
     Dosage: 1500 MG, 1X/DAY:QD, ORAL; 1000 MG, 1X/DAY:QD, ORAL (DIVIDED  INTO TWO DOSES), ORAL; 500 MG, 1X/DAY:Q
     Route: 048
     Dates: start: 20061004
  6. HYDROXYUREA [Suspect]
     Indication: ESSENTIAL THROMBOCYTHAEMIA
     Dosage: 1500 MG, 1X/DAY:QD, ORAL; 1000 MG, 1X/DAY:QD, ORAL (DIVIDED  INTO TWO DOSES), ORAL; 500 MG, 1X/DAY:Q
     Route: 048
     Dates: start: 20090222

REACTIONS (1)
  - SPLENIC INFARCTION [None]
